FAERS Safety Report 16210516 (Version 1)
Quarter: 2019Q2

REPORT INFORMATION
  Report Type: Report from Study
  Country: US (occurrence: US)
  Receive Date: 20190418
  Receipt Date: 20190418
  Transmission Date: 20190711
  Serious: No
  Sender: FDA-Public Use
  Company Number: US-ROCHE-2290026

PATIENT
  Age: 67 Year
  Sex: Female
  Weight: 67.19 kg

DRUGS (8)
  1. LABETALOL HCL [Concomitant]
     Active Substance: LABETALOL HYDROCHLORIDE
     Route: 065
  2. OCREVUS [Suspect]
     Active Substance: OCRELIZUMAB
     Dosage: 1ST HALF DOSE;ONGOING NO
     Route: 042
     Dates: start: 20190308
  3. CHLORTHALIDONE. [Concomitant]
     Active Substance: CHLORTHALIDONE
     Route: 065
  4. OCREVUS [Suspect]
     Active Substance: OCRELIZUMAB
     Dosage: 2ND HALF DOSE; ONGOING NO
     Route: 042
     Dates: start: 20190402
  5. ALENDRONATE SODIUM. [Concomitant]
     Active Substance: ALENDRONATE SODIUM
  6. ATORVASTATIN CALCIUM. [Concomitant]
     Active Substance: ATORVASTATIN CALCIUM
     Route: 065
  7. GILENYA [Concomitant]
     Active Substance: FINGOLIMOD HYDROCHLORIDE
     Route: 065
  8. OCREVUS [Suspect]
     Active Substance: OCRELIZUMAB
     Indication: MULTIPLE SCLEROSIS
     Route: 042
     Dates: start: 20190306

REACTIONS (10)
  - Pruritus [Recovered/Resolved with Sequelae]
  - Radial nerve palsy [Not Recovered/Not Resolved]
  - Insomnia [Unknown]
  - Gastroenteritis viral [Unknown]
  - Malaise [Unknown]
  - Visual impairment [Unknown]
  - Malaise [Unknown]
  - Haemoptysis [Unknown]
  - Amnesia [Unknown]
  - Pruritus [Recovered/Resolved]

NARRATIVE: CASE EVENT DATE: 20190307
